FAERS Safety Report 8418692-9 (Version None)
Quarter: 2012Q2

REPORT INFORMATION
  Report Type: 
  Country: None (occurrence: None)
  Receive Date: 20120607
  Receipt Date: 20120531
  Transmission Date: 20120825
  Serious: Yes (Hospitalization)
  Sender: FDA-Public Use
  Company Number: US-BAYER-201032426NA

PATIENT
  Age: 19 Year
  Sex: Female
  Weight: 52.154 kg

DRUGS (20)
  1. YAZ [Suspect]
     Indication: CONTRACEPTION
     Dosage: UNK
     Route: 048
     Dates: start: 20080325, end: 20080723
  2. PHENTERMINE [Concomitant]
  3. CYCLOBENZAPRINE [Concomitant]
     Dosage: UNK
     Dates: start: 20080101
  4. IBUPROFEN (ADVIL) [Concomitant]
     Dosage: UNK UNK, PRN
  5. METHYLPREDNISOLONE [Concomitant]
     Dosage: 4 MG, UNK
     Dates: start: 20090624
  6. MELOXICAM [Concomitant]
     Dosage: UNK
     Dates: start: 20080101
  7. CEPHALEXIN [Concomitant]
     Dosage: 500 MG, UNK
     Dates: start: 20090601
  8. PROMETHAZINE [Concomitant]
     Dosage: 25 MG, UNK
     Dates: start: 20081129
  9. PROMETH/COD [Concomitant]
     Dosage: 6.25-10
     Dates: start: 20090601
  10. ACETAMINOPHEN W/ PROPOXYPHENE HCL [Concomitant]
     Dosage: 100-650
     Dates: start: 20090922
  11. DICLOFENAC SODIUM [Concomitant]
  12. CEPHALEXIN [Concomitant]
     Dosage: 500 MG, UNK
     Dates: start: 20081117
  13. YAZ [Suspect]
     Indication: PREMENSTRUAL SYNDROME
  14. HYDROCODONE BITARTRATE AND ACETAMINOPHEN [Concomitant]
     Dosage: 5-500MG
     Dates: start: 20080101
  15. OXYCODONE HCL [Concomitant]
     Dosage: 5 MG, UNK
     Dates: start: 20081223
  16. MUSCLE RELAXANTS [Concomitant]
     Dosage: UNK
     Dates: start: 20080601
  17. COMBIVENT [Concomitant]
     Route: 055
  18. HYDROCODONE [Concomitant]
  19. C-PHEN DM [Concomitant]
     Dosage: UNK
     Dates: start: 20081117
  20. TRAMADO/APAP [Concomitant]
     Dosage: 37.5-325
     Dates: start: 20090617

REACTIONS (11)
  - DEEP VEIN THROMBOSIS [None]
  - THROMBOSIS [None]
  - RENAL VEIN THROMBOSIS [None]
  - PRODUCTIVE COUGH [None]
  - PULMONARY EMBOLISM [None]
  - PULMONARY THROMBOSIS [None]
  - DYSPNOEA [None]
  - PNEUMONIA [None]
  - DYSPNOEA EXERTIONAL [None]
  - CHEST PAIN [None]
  - FLANK PAIN [None]
